FAERS Safety Report 23318676 (Version 1)
Quarter: 2023Q4

REPORT INFORMATION
  Report Type: Spontaneous
  Country: US (occurrence: US)
  Receive Date: 20231220
  Receipt Date: 20231220
  Transmission Date: 20240109
  Serious: No
  Sender: FDA-Public Use
  Company Number: US-ABBVIE-2308749US

PATIENT
  Sex: Female

DRUGS (1)
  1. BOTOX [Suspect]
     Active Substance: ONABOTULINUMTOXINA
     Indication: Product used for unknown indication
     Dosage: TIME INTERVAL: AS NECESSARY
     Dates: start: 202301, end: 202301

REACTIONS (3)
  - Oral disorder [Unknown]
  - Impaired quality of life [Unknown]
  - Speech disorder [Unknown]

NARRATIVE: CASE EVENT DATE: 20230101
